FAERS Safety Report 7919150-8 (Version None)
Quarter: 2011Q4

REPORT INFORMATION
  Report Type: 
  Country: None (occurrence: None)
  Receive Date: 20111117
  Receipt Date: 20111107
  Transmission Date: 20120403
  Serious: Yes (Hospitalization, Other)
  Sender: FDA-Public Use
  Company Number: JP-ROCHE-1009697

PATIENT
  Sex: Female
  Weight: 60 kg

DRUGS (23)
  1. ALFAROL [Concomitant]
     Route: 048
  2. AMLODIPINE [Concomitant]
     Route: 048
  3. RHYTHMY [Concomitant]
     Indication: INSOMNIA
     Dosage: SINGLE USE
     Route: 048
  4. DIAZEPAM [Concomitant]
     Indication: INSOMNIA
     Dosage: SINGLE USE
     Route: 048
  5. ACTEMRA [Suspect]
     Route: 041
     Dates: start: 20090706, end: 20110117
  6. ZANTAC [Concomitant]
     Route: 048
  7. MORPHINE HCL ELIXIR [Concomitant]
     Route: 048
  8. MOTILIUM [Concomitant]
     Route: 048
  9. KETOPROFEN [Concomitant]
     Route: 061
  10. CINAL [Concomitant]
     Route: 048
  11. LEVOFLOXACIN [Concomitant]
     Route: 048
  12. CANDESARTAN CILEXETIL [Concomitant]
     Route: 048
  13. ACTEMRA [Suspect]
     Indication: RHEUMATOID ARTHRITIS
     Dosage: DOSAGE IS UNCERTAIN.
     Route: 041
     Dates: start: 20081219, end: 20090608
  14. PREDNISOLONE [Concomitant]
     Route: 048
  15. INFREE [Concomitant]
     Route: 048
  16. METHOTREXATE [Concomitant]
     Indication: RHEUMATOID ARTHRITIS
     Route: 048
  17. DICLOFENAC SODIUM [Concomitant]
     Route: 054
  18. MAGNESIUM OXIDE [Concomitant]
     Dosage: AMOUNT 3
     Route: 048
  19. PURSENNID [Concomitant]
     Indication: CONSTIPATION
     Dosage: SINGLE USE
     Route: 048
  20. CANDESARTAN CILEXETIL [Concomitant]
     Route: 048
  21. ACTONEL [Concomitant]
     Route: 048
  22. LEVOTHYROXINE SODIUM [Concomitant]
     Route: 048
  23. MARZULENE-S [Concomitant]
     Route: 048

REACTIONS (2)
  - POST PROCEDURAL INFECTION [None]
  - CHOLELITHIASIS [None]
